FAERS Safety Report 7546686-4 (Version None)
Quarter: 2011Q2

REPORT INFORMATION
  Report Type: 
  Country: None (occurrence: None)
  Receive Date: 20110614
  Receipt Date: 20110526
  Transmission Date: 20111010
  Serious: Yes (Hospitalization)
  Sender: FDA-Public Use
  Company Number: A0774404A

PATIENT
  Age: 37 Year
  Sex: Female
  Weight: 81.8 kg

DRUGS (8)
  1. AVANDAMET [Suspect]
     Indication: DIABETES MELLITUS
     Route: 048
     Dates: end: 20060101
  2. MUCOMYST [Concomitant]
  3. ZOCOR [Concomitant]
  4. METFORMIN HCL [Concomitant]
  5. LEVAQUIN [Concomitant]
  6. PROTONIX [Concomitant]
  7. AVANDIA [Suspect]
     Dosage: 4MG TWICE PER DAY
     Route: 048
     Dates: start: 20060502, end: 20070726
  8. DARVOCET [Concomitant]

REACTIONS (3)
  - MYOCARDIAL INFARCTION [None]
  - ARTERIOVENOUS GRAFT SITE INFECTION [None]
  - CORONARY ARTERY DISEASE [None]
